FAERS Safety Report 20280014 (Version 2)
Quarter: 2022Q1

REPORT INFORMATION
  Report Type: Report from Study
  Country: US (occurrence: US)
  Receive Date: 20220103
  Receipt Date: 20220105
  Transmission Date: 20220423
  Serious: Yes (Other)
  Sender: FDA-Public Use
  Company Number: US-MYLANLABS-2021M1092367

PATIENT
  Sex: Female
  Weight: 107.95 kg

DRUGS (1)
  1. GLATIRAMER ACETATE [Suspect]
     Active Substance: GLATIRAMER ACETATE
     Indication: Relapsing-remitting multiple sclerosis
     Dosage: 40 MILLIGRAM, 3XW
     Route: 058
     Dates: start: 202111

REACTIONS (5)
  - Hepatitis C [Unknown]
  - Cough [Unknown]
  - Chills [Unknown]
  - Injection site pain [Unknown]
  - Injection site mass [Unknown]
